FAERS Safety Report 21828764 (Version 1)
Quarter: 2023Q1

REPORT INFORMATION
  Report Type: Spontaneous
  Country: US (occurrence: None)
  Receive Date: 20230105
  Receipt Date: 20230105
  Transmission Date: 20230418
  Serious: Yes (Hospitalization)
  Sender: FDA-Public Use
  Company Number: None

PATIENT
  Sex: Female

DRUGS (9)
  1. HUMIRA [Suspect]
     Active Substance: ADALIMUMAB
     Indication: Essential hypertension
     Dosage: OTHER QUANTITY : 40 MG/0.4ML ;?
     Route: 058
     Dates: start: 20221215
  2. ENBREL [Concomitant]
  3. ESTRADIOL [Concomitant]
  4. GABAPENTIN [Concomitant]
     Active Substance: GABAPENTIN
  5. HYDROXYZINE HYDROCHLORIDE [Concomitant]
     Active Substance: HYDROXYZINE HYDROCHLORIDE
  6. LATUDA [Concomitant]
     Active Substance: LURASIDONE HYDROCHLORIDE
  7. LOTEMAX [Concomitant]
  8. PREDNISONE [Concomitant]
     Active Substance: PREDNISONE
  9. RESTASIS [Concomitant]

REACTIONS (4)
  - Loss of consciousness [None]
  - Urinary tract infection [None]
  - Therapy interrupted [None]
  - Malaise [None]
